FAERS Safety Report 4477622-5 (Version None)
Quarter: 2004Q4

REPORT INFORMATION
  Report Type: 
  Country: None (occurrence: None)
  Receive Date: 20041014
  Receipt Date: 20041007
  Transmission Date: 20050328
  Serious: Yes (Hospitalization)
  Sender: FDA-Public Use
  Company Number: US-2004-030944

PATIENT
  Sex: Female

DRUGS (14)
  1. BETASERON [Suspect]
     Indication: MULTIPLE SCLEROSIS
     Dosage: SUBCUTANEOUS
     Route: 058
     Dates: start: 19961001
  2. PREDNISONE [Suspect]
     Indication: OEDEMA PERIPHERAL
     Dates: start: 20031126, end: 20031210
  3. XALATAN (LATANOPROST0 [Concomitant]
  4. LEVOTHYROXINE SODIUM [Concomitant]
  5. ATENOLO [Concomitant]
  6. LIPITOR [Concomitant]
  7. FOLIC ACID [Concomitant]
  8. VITAMIN E [Concomitant]
  9. VITAMIN D [Concomitant]
  10. ACETYLSALICYLIC ACID (ACETILSALICYLIC ACID) [Concomitant]
  11. STOOL SOFTENER (DOCUSATE SODIUM) [Concomitant]
  12. VITAMIN C [Concomitant]
  13. MAGNESIUM (MAGNESIUM) [Concomitant]
  14. MULTIPLE VITAMINS (RETINOL) [Concomitant]

REACTIONS (5)
  - DRUG HYPERSENSITIVITY [None]
  - INDURATION [None]
  - OEDEMA PERIPHERAL [None]
  - PAIN [None]
  - PSYCHOTIC DISORDER [None]
